FAERS Safety Report 9563813 (Version 1)
Quarter: 2013Q3

REPORT INFORMATION
  Report Type: Spontaneous
  Country: US (occurrence: None)
  Receive Date: 20130926
  Receipt Date: 20130926
  Transmission Date: 20140515
  Serious: Yes (Disabling, Other)
  Sender: FDA-Public Use
  Company Number: None

PATIENT
  Age: 36 Year
  Sex: Female

DRUGS (1)
  1. BOTOX [Suspect]
     Indication: SKIN WRINKLING
     Dates: start: 20130219, end: 20130713

REACTIONS (7)
  - Dry eye [None]
  - Eye irritation [None]
  - Eye pain [None]
  - Migraine [None]
  - Ocular hyperaemia [None]
  - Depression [None]
  - Anxiety [None]
